FAERS Safety Report 5618334-1 (Version None)
Quarter: 2008Q1

REPORT INFORMATION
  Report Type: 
  Country: None (occurrence: None)
  Receive Date: 20080205
  Receipt Date: 20080205
  Transmission Date: 20080703
  Serious: No
  Sender: FDA-Public Use
  Company Number: None

PATIENT
  Age: 62 Year
  Sex: Male
  Weight: 95.2554 kg

DRUGS (4)
  1. LAMICTAL [Suspect]
     Indication: BIPOLAR DISORDER
     Dosage: 200 MG  ONCE PER DAY  PO
     Route: 048
     Dates: start: 20000101, end: 20080101
  2. LAMICTAL [Suspect]
     Indication: DEPRESSION
     Dosage: 200 MG  ONCE PER DAY  PO
     Route: 048
     Dates: start: 20000101, end: 20080101
  3. CYMBALTA [Suspect]
     Indication: BIPOLAR DISORDER
     Dosage: 60MG  ONCE PER DAY  PO
     Route: 048
     Dates: start: 20000101, end: 20080101
  4. CYMBALTA [Suspect]
     Indication: DEPRESSION
     Dosage: 60MG  ONCE PER DAY  PO
     Route: 048
     Dates: start: 20000101, end: 20080101

REACTIONS (3)
  - DEPRESSION [None]
  - DRUG PRESCRIBING ERROR [None]
  - SUICIDAL IDEATION [None]
